FAERS Safety Report 12182056 (Version 3)
Quarter: 2016Q2

REPORT INFORMATION
  Report Type: Report from Study
  Country: US (occurrence: US)
  Receive Date: 20160315
  Receipt Date: 20160506
  Transmission Date: 20160815
  Serious: Yes (Hospitalization)
  Sender: FDA-Public Use
  Company Number: US-BIOGEN-2014BI124342

PATIENT
  Sex: Female

DRUGS (2)
  1. AVONEX [Suspect]
     Active Substance: INTERFERON BETA-1A
     Route: 030
     Dates: start: 20010101, end: 20150501
  2. AVONEX [Suspect]
     Active Substance: INTERFERON BETA-1A
     Indication: MULTIPLE SCLEROSIS
     Route: 030

REACTIONS (18)
  - Intervertebral disc compression [Recovered/Resolved]
  - Nerve injury [Recovered/Resolved]
  - Balance disorder [Recovered/Resolved with Sequelae]
  - Depression [Not Recovered/Not Resolved]
  - Nerve root compression [Recovered/Resolved]
  - Spinal pain [Not Recovered/Not Resolved]
  - Hypoaesthesia [Recovered/Resolved with Sequelae]
  - Myalgia [Recovered/Resolved]
  - Pain in extremity [Recovered/Resolved with Sequelae]
  - Paraesthesia [Recovered/Resolved]
  - Musculoskeletal pain [Not Recovered/Not Resolved]
  - Restless legs syndrome [Recovered/Resolved]
  - Anxiety [Not Recovered/Not Resolved]
  - Spinal column stenosis [Not Recovered/Not Resolved]
  - Lipidosis [Not Recovered/Not Resolved]
  - Tremor [Recovered/Resolved]
  - Attention deficit/hyperactivity disorder [Not Recovered/Not Resolved]
  - Sciatica [Recovered/Resolved with Sequelae]

NARRATIVE: CASE EVENT DATE: 2002
